FAERS Safety Report 24667844 (Version 2)
Quarter: 2024Q4

REPORT INFORMATION
  Report Type: Report from Study
  Country: US (occurrence: US)
  Receive Date: 20241127
  Receipt Date: 20241212
  Transmission Date: 20250115
  Serious: Yes (Hospitalization)
  Sender: ABBVIE
  Company Number: US-ABBVIE-5972328

PATIENT
  Age: 60 Year
  Sex: Male
  Weight: 119.74 kg

DRUGS (2)
  1. VENCLEXTA [Suspect]
     Active Substance: VENETOCLAX
     Indication: Acute lymphocytic leukaemia
     Dosage: ON VENCLEXTA FOR 21 DAYS ON AND 7 DAYS OFF PER EACH CYCLE
     Route: 048
  2. VENCLEXTA [Suspect]
     Active Substance: VENETOCLAX
     Indication: Acute lymphocytic leukaemia
     Dosage: ON VENCLEXTA FOR 21 DAYS ON AND 7 DAYS OFF PER EACH CYCLE
     Route: 048
     Dates: end: 20241204

REACTIONS (1)
  - Acute lymphocytic leukaemia [Unknown]

NARRATIVE: CASE EVENT DATE: 20241121
